FAERS Safety Report 7415192-X (Version None)
Quarter: 2011Q2

REPORT INFORMATION
  Report Type: 
  Country: None (occurrence: None)
  Receive Date: 20110414
  Receipt Date: 20110408
  Transmission Date: 20111010
  Serious: Yes (Hospitalization, Other)
  Sender: FDA-Public Use
  Company Number: PHHO2011US05838

PATIENT
  Sex: Female
  Weight: 60.7 kg

DRUGS (8)
  1. CYANOCOBALAMIN [Concomitant]
  2. MAGNESIUM GLUCONATE [Concomitant]
  3. ATIVAN [Concomitant]
  4. LISINOPRIL [Concomitant]
  5. ZOFRAN [Concomitant]
  6. AFINITOR [Suspect]
     Indication: COLORECTAL CANCER METASTATIC
     Dosage: 10 MG, QD
     Route: 048
     Dates: start: 20110304, end: 20110318
  7. PANTOPRAZOLE [Concomitant]
  8. CELEXA [Concomitant]

REACTIONS (2)
  - HYDRONEPHROSIS [None]
  - URETERIC OBSTRUCTION [None]
